FAERS Safety Report 4645171-7 (Version None)
Quarter: 2005Q2

REPORT INFORMATION
  Report Type: 
  Country: None (occurrence: None)
  Receive Date: 20050331
  Receipt Date: 20041203
  Transmission Date: 20051028
  Serious: No
  Sender: FDA-Public Use
  Company Number: 04P-163-0282202-00

PATIENT
  Age: 51 Year
  Sex: Female
  Weight: 90.7194 kg

DRUGS (12)
  1. HUMIRA [Suspect]
     Indication: RHEUMATOID ARTHRITIS
     Dosage: 40 MG, 1 IN 2 WK, SUBCUTANEOUS
     Route: 058
     Dates: start: 20041001
  2. ATENOLOL [Concomitant]
  3. LISINOPRIL [Concomitant]
  4. ATORVASTATIN CALCIUM [Concomitant]
  5. NAPROXAN [Concomitant]
  6. PREDNISONE TAB [Concomitant]
  7. KLIOGEST ^NOVO INDUSTRI^ [Concomitant]
  8. OMEPRAZOLE [Concomitant]
  9. VITAMIN AND MINERAL PRENATAL SUPPLEMENT W/ FOLIC ACID CAP [Concomitant]
  10. ALENDRONATE SODIUM [Concomitant]
  11. SEE IMAGE [Concomitant]
  12. LEXAPRO [Concomitant]

REACTIONS (1)
  - MEDICATION ERROR [None]
